FAERS Safety Report 4355915-X (Version None)
Quarter: 2004Q2

REPORT INFORMATION
  Report Type: 
  Country: None (occurrence: None)
  Receive Date: 20040507
  Receipt Date: 20040507
  Transmission Date: 20050107
  Serious: Yes (Other)
  Sender: FDA-Public Use
  Company Number: None

PATIENT
  Sex: Male
  Weight: 108.8633 kg

DRUGS (1)
  1. TWICE-A-DAY 12 HOUR NASAL SPRAY MFG BY PROPHARMA, INC [Suspect]
     Indication: NASAL DECONGESTION THERAPY
     Dates: start: 20040319, end: 20040321

REACTIONS (3)
  - COUGH [None]
  - FATIGUE [None]
  - MALAISE [None]
